FAERS Safety Report 12471406 (Version 1)
Quarter: 2016Q2

REPORT INFORMATION
  Report Type: Spontaneous
  Country: FR (occurrence: FR)
  Receive Date: 20160616
  Receipt Date: 20160616
  Transmission Date: 20160815
  Serious: Yes (Hospitalization, Congenital Anomaly, Other)
  Sender: FDA-Public Use
  Company Number: FR-GLAXOSMITHKLINE-FR2016GSK084697

PATIENT
  Age: 0 Day
  Sex: Male
  Weight: 3.14 kg

DRUGS (3)
  1. LAMICTAL [Suspect]
     Active Substance: LAMOTRIGINE
     Indication: MOOD ALTERED
     Dosage: UNK
     Route: 064
     Dates: end: 20160523
  2. INSULIN [Suspect]
     Active Substance: INSULIN NOS
     Indication: GESTATIONAL DIABETES
     Dosage: 20 IU, QD
     Route: 064
     Dates: end: 20160523
  3. SERTRALINE [Suspect]
     Active Substance: SERTRALINE HYDROCHLORIDE
     Indication: MOOD ALTERED
     Dosage: 50 MG, QD
     Route: 064
     Dates: end: 20160523

REACTIONS (5)
  - Hypotonia neonatal [Recovering/Resolving]
  - Neonatal respiratory distress syndrome [Recovered/Resolved]
  - Dysphagia [Recovering/Resolving]
  - Foetal exposure during pregnancy [Unknown]
  - Tongue disorder [Recovering/Resolving]

NARRATIVE: CASE EVENT DATE: 20160523
